FAERS Safety Report 22150057 (Version 1)
Quarter: 2023Q1

REPORT INFORMATION
  Report Type: Report from Study
  Country: CN (occurrence: CN)
  Receive Date: 20230329
  Receipt Date: 20230329
  Transmission Date: 20230417
  Serious: Yes (Other)
  Sender: FDA-Public Use
  Company Number: CN-SUN PHARMACEUTICAL INDUSTRIES LTD-2023R1-382777

PATIENT
  Age: 42 Year
  Sex: Female

DRUGS (6)
  1. DOCETAXEL [Suspect]
     Active Substance: DOCETAXEL
     Indication: Leiomyosarcoma
     Dosage: UNK
     Route: 065
  2. VINCRISTINE [Suspect]
     Active Substance: VINCRISTINE
     Indication: Leiomyosarcoma
     Dosage: UNK
     Route: 065
  3. DACARBAZINE [Suspect]
     Active Substance: DACARBAZINE
     Indication: Leiomyosarcoma
     Dosage: UNK
     Route: 065
  4. IFOSFAMIDE [Suspect]
     Active Substance: IFOSFAMIDE
     Indication: Leiomyosarcoma
     Dosage: UNK
     Route: 065
  5. PERTUZUMAB [Suspect]
     Active Substance: PERTUZUMAB
     Indication: Leiomyosarcoma
     Dosage: UNK
     Route: 065
  6. TRASTUZUMAB [Suspect]
     Active Substance: TRASTUZUMAB
     Indication: Leiomyosarcoma
     Dosage: UNK
     Route: 065

REACTIONS (1)
  - Treatment failure [Unknown]
